FAERS Safety Report 10032419 (Version 1)
Quarter: 2014Q1

REPORT INFORMATION
  Report Type: Spontaneous
  Country: IT (occurrence: None)
  Receive Date: 20140320
  Receipt Date: 20140320
  Transmission Date: 20141002
  Serious: Yes (Life-Threatening)
  Sender: FDA-Public Use
  Company Number: 2014CP000037

PATIENT
  Age: 9 Month
  Sex: Male

DRUGS (5)
  1. PERFALGAN (PARACETAMOL) [Suspect]
     Indication: PROCEDURAL PAIN
     Dosage: 1200MG 1 DAY IV
     Route: 042
     Dates: start: 20140217, end: 20140218
  2. RANTIDINE [Concomitant]
  3. METRONIDAZOLE [Concomitant]
  4. ADRENALINE [Concomitant]
  5. BRONOCOVALEAS [Concomitant]

REACTIONS (4)
  - Hepatic failure [None]
  - Acidosis [None]
  - Overdose [None]
  - Drug administration error [None]
